FAERS Safety Report 5070999-1 (Version None)
Quarter: 2006Q3

REPORT INFORMATION
  Report Type: 
  Country: None (occurrence: None)
  Receive Date: 20060804
  Receipt Date: 20051128
  Transmission Date: 20061208
  Serious: No
  Sender: FDA-Public Use
  Company Number: US-GLAXOSMITHKLINE-A0583644A

PATIENT
  Age: 58 Year
  Sex: Female

DRUGS (3)
  1. NICORETTE [Suspect]
  2. NICODERM CQ [Suspect]
  3. ASPIRIN [Concomitant]
     Indication: PROPHYLAXIS

REACTIONS (3)
  - ABNORMAL DREAMS [None]
  - DYSPEPSIA [None]
  - RASH [None]
